FAERS Safety Report 6124403-2 (Version None)
Quarter: 2009Q1

REPORT INFORMATION
  Report Type: 
  Country: None (occurrence: None)
  Receive Date: 20090317
  Receipt Date: 20090317
  Transmission Date: 20090719
  Serious: Yes (Life-Threatening, Hospitalization, Other)
  Sender: FDA-Public Use
  Company Number: None

PATIENT
  Age: 39 Year
  Sex: Female
  Weight: 104.7809 kg

DRUGS (1)
  1. MULTIVITAMIN [Suspect]
     Indication: PRENATAL CARE
     Dosage: 1 TABLET DAILY PO
     Route: 048
     Dates: start: 20090115, end: 20090315

REACTIONS (10)
  - DRY THROAT [None]
  - DYSPHAGIA [None]
  - DYSPNOEA [None]
  - FOOD ALLERGY [None]
  - GASTROOESOPHAGEAL REFLUX DISEASE [None]
  - MASTICATION DISORDER [None]
  - PHARYNGEAL OEDEMA [None]
  - POSTNASAL DRIP [None]
  - SWOLLEN TONGUE [None]
  - TONGUE DRY [None]
